FAERS Safety Report 14850526 (Version 6)
Quarter: 2018Q3

REPORT INFORMATION
  Report Type: Report from Study
  Country: US (occurrence: US)
  Receive Date: 20180505
  Receipt Date: 20180921
  Transmission Date: 20181010
  Serious: Yes (Other)
  Sender: FDA-Public Use
  Company Number: US-MALLINCKRODT-T201704788

PATIENT
  Age: 82 Year
  Sex: Female

DRUGS (10)
  1. REPOSITORY CORTICOTROPIN INJECTION [Suspect]
     Active Substance: CORTICOTROPIN
     Indication: POLYMYOSITIS
     Dosage: 80 UNITS/1 ML, 1 TIME WEEKLY (MONDAY)
     Route: 058
     Dates: start: 20171127
  2. RAYOS [Suspect]
     Active Substance: PREDNISONE
     Indication: POLYMYOSITIS
     Dosage: INCREASED TO 15 MG
     Route: 065
  3. CORTISONE [Concomitant]
     Active Substance: CORTISONE\HYDROCORTISONE
     Indication: PRODUCT USED FOR UNKNOWN INDICATION
     Dosage: UNKNOWN
     Route: 065
  4. REPOSITORY CORTICOTROPIN INJECTION [Suspect]
     Active Substance: CORTICOTROPIN
     Dosage: 80 UNITS/1 ML, 1 TIME WEEKLY (THURSDAY)
     Route: 058
  5. REPOSITORY CORTICOTROPIN INJECTION [Suspect]
     Active Substance: CORTICOTROPIN
     Dosage: 80 UNITS/1 ML, 2 TIMES PER WEEK MONDAY/FRIDAY
     Route: 058
  6. REPOSITORY CORTICOTROPIN INJECTION [Suspect]
     Active Substance: CORTICOTROPIN
     Dosage: 80 UNITS/1 ML, 1 TIME WEEKLY (WEDNESDAY)
     Route: 058
  7. VOLTAREN [Concomitant]
     Active Substance: DICLOFENAC SODIUM
     Indication: PRODUCT USED FOR UNKNOWN INDICATION
     Dosage: UNK
     Route: 065
  8. PREDNISONE. [Concomitant]
     Active Substance: PREDNISONE
     Indication: POLYMYOSITIS
     Dosage: 5 MG, TWICE A DAY
     Route: 065
  9. VITAMIN D3 [Concomitant]
     Active Substance: CHOLECALCIFEROL
     Indication: PRODUCT USED FOR UNKNOWN INDICATION
     Dosage: UNK
     Route: 065
  10. ELIQUIS [Concomitant]
     Active Substance: APIXABAN
     Indication: BLOOD DISORDER
     Dosage: 2.5 MG, TWICE A DAY
     Route: 065

REACTIONS (27)
  - Diabetes mellitus [Unknown]
  - Fatigue [Unknown]
  - Asthenia [Unknown]
  - Genital pain [Unknown]
  - Pruritus [Unknown]
  - Vision blurred [Unknown]
  - Feeling cold [Unknown]
  - Drug dose omission [Not Recovered/Not Resolved]
  - Polymyositis [Unknown]
  - Dizziness [Unknown]
  - Sensory disturbance [Unknown]
  - Dry skin [Unknown]
  - Ear disorder [Unknown]
  - Thrombosis [Unknown]
  - Blood pressure increased [Unknown]
  - Condition aggravated [Unknown]
  - Dry mouth [Not Recovered/Not Resolved]
  - Dysphagia [Unknown]
  - Insomnia [Not Recovered/Not Resolved]
  - Chromaturia [Recovered/Resolved]
  - Pain [Not Recovered/Not Resolved]
  - Blood pressure fluctuation [Unknown]
  - Presyncope [Unknown]
  - Depressed mood [Unknown]
  - Eye pruritus [Unknown]
  - Feeling abnormal [Not Recovered/Not Resolved]
  - Headache [Unknown]

NARRATIVE: CASE EVENT DATE: 20171127
